FAERS Safety Report 4678593-9 (Version None)
Quarter: 2005Q2

REPORT INFORMATION
  Report Type: 
  Country: None (occurrence: None)
  Receive Date: 20050527
  Receipt Date: 20050517
  Transmission Date: 20051028
  Serious: Yes (Other)
  Sender: FDA-Public Use
  Company Number: 2004-10-1653

PATIENT
  Age: 53 Year
  Sex: Female

DRUGS (2)
  1. NASONEX [Suspect]
     Indication: POSTNASAL DRIP
     Dosage: 1-2 QD NASAL SPRAY
     Route: 045
     Dates: start: 20031101, end: 20040101
  2. PREDNISONE [Suspect]
     Indication: POSTNASAL DRIP
     Dosage: ORAL
     Route: 048
     Dates: start: 20030901, end: 20040301

REACTIONS (1)
  - RETINOPATHY [None]
